FAERS Safety Report 5987063-7 (Version None)
Quarter: 2008Q4

REPORT INFORMATION
  Report Type: 
  Country: None (occurrence: None)
  Receive Date: 20081209
  Receipt Date: 20071205
  Transmission Date: 20090506
  Serious: No
  Sender: FDA-Public Use
  Company Number: A0697521A

PATIENT
  Age: 67 Year
  Sex: Female

DRUGS (7)
  1. AVANDAMET [Suspect]
     Route: 048
  2. TOPROL-XL [Concomitant]
  3. METFORMIN HCL [Concomitant]
  4. VASOTEC [Concomitant]
  5. SYNTHROID [Concomitant]
  6. UNKNOWN MEDICATION [Concomitant]
  7. XANAX [Concomitant]

REACTIONS (10)
  - ANOREXIA [None]
  - BLOOD GLUCOSE DECREASED [None]
  - FALL [None]
  - JOINT SWELLING [None]
  - KNEE OPERATION [None]
  - OEDEMA PERIPHERAL [None]
  - OSTEOPOROSIS [None]
  - PERIPHERAL COLDNESS [None]
  - SKIN WARM [None]
  - WEIGHT INCREASED [None]
